FAERS Safety Report 6258580-X (Version None)
Quarter: 2009Q3

REPORT INFORMATION
  Report Type: 
  Country: None (occurrence: None)
  Receive Date: 20090707
  Receipt Date: 20090629
  Transmission Date: 20100115
  Serious: Yes (Other)
  Sender: FDA-Public Use
  Company Number: CA-ROCHE-641776

PATIENT
  Age: 56 Year
  Sex: Male

DRUGS (2)
  1. ENFUVIRTIDE [Suspect]
     Route: 065
  2. RALTEGRAVIR [Suspect]
     Route: 048

REACTIONS (2)
  - DEPRESSION [None]
  - PROSTATE CANCER [None]
